FAERS Safety Report 9425201 (Version 3)
Quarter: 2013Q4

REPORT INFORMATION
  Report Type: Spontaneous
  Country: GB (occurrence: None)
  Receive Date: 20130725
  Receipt Date: 20131112
  Transmission Date: 20140711
  Serious: Yes (Life-Threatening, Other)
  Sender: FDA-Public Use
  Company Number: AUR-APL-2013-05978

PATIENT
  Age: 79 Year
  Sex: Male
  Weight: 86 kg

DRUGS (3)
  1. SIMVASTATIN (SIMVASTATIN) [Suspect]
     Indication: PRODUCT USED FOR UNKNOWN INDICATION
     Dates: end: 20130702
  2. ASPIRIN (ACETYLSALICYLIC ACID) [Concomitant]
  3. BETAMETHASONE (BETAMETHASONE) [Concomitant]

REACTIONS (3)
  - Swollen tongue [None]
  - Obstructive airways disorder [None]
  - Bronchospasm [None]
